FAERS Safety Report 7676257-0 (Version None)
Quarter: 2011Q3

REPORT INFORMATION
  Report Type: 
  Country: None (occurrence: None)
  Receive Date: 20110805
  Receipt Date: 20110725
  Transmission Date: 20111222
  Serious: Yes (Other)
  Sender: FDA-Public Use
  Company Number: 120212

PATIENT
  Age: 12 Year
  Sex: Male

DRUGS (1)
  1. CEFTRIAXON [Suspect]
     Indication: ORAL INFECTION
     Dosage: 1G/IM/1 DOSE
     Dates: start: 20110725

REACTIONS (1)
  - EXPIRED DRUG ADMINISTERED [None]
